FAERS Safety Report 19589773 (Version 3)
Quarter: 2022Q1

REPORT INFORMATION
  Report Type: Report from Study
  Country: KR (occurrence: KR)
  Receive Date: 20210721
  Receipt Date: 20220315
  Transmission Date: 20220423
  Serious: No
  Sender: FDA-Public Use
  Company Number: KR-CELGENE-KOR-20210701619

PATIENT
  Age: 65 Year
  Sex: Female
  Weight: 49 kg

DRUGS (1)
  1. FEDRATINIB [Suspect]
     Active Substance: FEDRATINIB
     Indication: Myelofibrosis
     Dosage: 400 MG X 1 X 1 DAYS
     Route: 048
     Dates: start: 20200513, end: 20200517

REACTIONS (1)
  - Vitamin B1 deficiency [Recovered/Resolved]

NARRATIVE: CASE EVENT DATE: 20210609
